FAERS Safety Report 7977821-1 (Version None)
Quarter: 2011Q4

REPORT INFORMATION
  Report Type: 
  Country: None (occurrence: None)
  Receive Date: 20111214
  Receipt Date: 20111130
  Transmission Date: 20120403
  Serious: No
  Sender: FDA-Public Use
  Company Number: US-AMGEN-USASP2011061793

PATIENT
  Age: 57 Year
  Sex: Female
  Weight: 84.354 kg

DRUGS (6)
  1. ENBREL [Suspect]
     Indication: RHEUMATOID ARTHRITIS
     Dosage: 50 MG, QWK
     Route: 058
     Dates: start: 20000526
  2. PLAX                               /02286701/ [Concomitant]
     Dosage: UNK UNK, QD
     Route: 048
  3. MULTIVITAMIN                       /05516001/ [Concomitant]
  4. IBUPROFEN [Concomitant]
     Dosage: 800 UNK, PRN
     Route: 048
  5. CELEXA [Concomitant]
     Dosage: UNK UNK, QD
     Route: 048
  6. FISH OIL [Concomitant]
     Dosage: UNK UNK, QD
     Route: 048

REACTIONS (3)
  - PYREXIA [None]
  - OROPHARYNGEAL PAIN [None]
  - NASOPHARYNGITIS [None]
